FAERS Safety Report 7985689-2 (Version None)
Quarter: 2011Q4

REPORT INFORMATION
  Report Type: 
  Country: None (occurrence: None)
  Receive Date: 20111216
  Receipt Date: 20111212
  Transmission Date: 20120403
  Serious: Yes (Hospitalization)
  Sender: FDA-Public Use
  Company Number: CA-ABBOTT-11P-028-0856710-00

PATIENT
  Sex: Male
  Weight: 79.45 kg

DRUGS (7)
  1. CALCIUM [Concomitant]
     Indication: PROPHYLAXIS
     Route: 048
  2. PREDNISONE [Concomitant]
     Indication: CROHN'S DISEASE
     Route: 048
  3. MAVIK [Concomitant]
     Indication: HYPERTENSION
     Dosage: HTA
     Route: 048
  4. EURO-D [Concomitant]
     Indication: PROPHYLAXIS
     Route: 048
  5. HUMIRA [Suspect]
     Indication: CROHN'S DISEASE
     Route: 058
     Dates: start: 20100615
  6. HUMIRA [Suspect]
     Dosage: EVERY WEEK
     Route: 058
  7. PURINETHOL [Concomitant]
     Indication: CROHN'S DISEASE
     Route: 048

REACTIONS (3)
  - CROHN'S DISEASE [None]
  - MUSCLE SPASMS [None]
  - ARTHRALGIA [None]
